FAERS Safety Report 10418045 (Version 1)
Quarter: 2014Q2

REPORT INFORMATION
  Report Type: Spontaneous
  Country: None (occurrence: None)
  Receive Date: 20140613
  Receipt Date: 20140613
  Transmission Date: 20141212
  Serious: Yes (Hospitalization)
  Sender: FDA-Public Use
  Company Number: PHEH2014US001543

PATIENT
  Age: 54 Year
  Sex: 0

DRUGS (1)
  1. EXFORGE HCT [Suspect]

REACTIONS (2)
  - Fluid retention [None]
  - Weight increased [None]
